FAERS Safety Report 8950759 (Version 1)
Quarter: 2012Q4

REPORT INFORMATION
  Report Type: 
  Country: AU (occurrence: AU)
  Receive Date: 20121206
  Receipt Date: 20121206
  Transmission Date: 20130627
  Serious: Yes (Disabling)
  Sender: FDA-Public Use
  Company Number: AU-BAXTER-2012BAX025768

PATIENT
  Age: 47 Year
  Sex: Male
  Weight: 70.9 kg

DRUGS (5)
  1. KIOVIG NORMAL IMMUNOGLOBULIN (HUMAN) 10G/100ML FOR INTRAVENOUS USE INJ [Suspect]
     Indication: MULTIPLE MYELOMA
     Route: 042
     Dates: start: 20121120, end: 20121120
  2. KIOVIG NORMAL IMMUNOGLOBULIN (HUMAN) 10G/100ML FOR INTRAVENOUS USE INJ [Suspect]
     Indication: INTENTIONAL USE FOR UNLABELED INDICATION
  3. VALACYCLOVIR [Concomitant]
     Indication: ANTIVIRAL PROPHYLAXIS
     Route: 048
  4. FOLIC ACID [Concomitant]
     Indication: STEM CELL TRANSPLANT
     Route: 048
  5. ALLOPURINOL [Concomitant]
     Indication: STEM CELL TRANSPLANT
     Route: 048

REACTIONS (4)
  - Body temperature increased [Recovered/Resolved]
  - Chills [Recovered/Resolved]
  - Chest pain [Recovered/Resolved]
  - Chest discomfort [Recovered/Resolved]
